FAERS Safety Report 19040206 (Version 1)
Quarter: 2021Q1

REPORT INFORMATION
  Report Type: Report from Study
  Country: IT (occurrence: IT)
  Receive Date: 20210323
  Receipt Date: 20210323
  Transmission Date: 20210420
  Serious: Yes (Hospitalization)
  Sender: FDA-Public Use
  Company Number: IT-TEVA-2021-IT-1892144

PATIENT
  Age: 76 Year
  Sex: Male

DRUGS (9)
  1. AUGMENTIN [Concomitant]
     Active Substance: AMOXICILLIN\CLAVULANATE POTASSIUM
     Dates: start: 20210208
  2. REPAGLINIDE. [Concomitant]
     Active Substance: REPAGLINIDE
  3. CARBOPLATIN. [Suspect]
     Active Substance: CARBOPLATIN
     Route: 065
     Dates: start: 20210122
  4. PEMETREXED DISODIUM [Suspect]
     Active Substance: PEMETREXED DISODIUM
     Route: 065
     Dates: start: 20210122
  5. KEYTRUDA [Suspect]
     Active Substance: PEMBROLIZUMAB
     Route: 065
     Dates: start: 20210122
  6. LEVOFLOXACIN. [Concomitant]
     Active Substance: LEVOFLOXACIN
     Dates: end: 20210208
  7. ZANEDIP 10 MG COMPRESSE RIVESTITE CON FILM [Concomitant]
     Active Substance: LERCANIDIPINE HYDROCHLORIDE
  8. METFORAL 850 MG COMPRESSE RIVESTITE CON FILM [Concomitant]
  9. PAROXETINE. [Concomitant]
     Active Substance: PAROXETINE

REACTIONS (5)
  - Pancytopenia [Unknown]
  - Rash [Unknown]
  - Hypocalcaemia [Unknown]
  - Pyrexia [Unknown]
  - Vomiting [Unknown]

NARRATIVE: CASE EVENT DATE: 20210209
